FAERS Safety Report 4500767-8 (Version None)
Quarter: 2004Q4

REPORT INFORMATION
  Report Type: 
  Country: None (occurrence: None)
  Receive Date: 20041115
  Receipt Date: 20041029
  Transmission Date: 20050328
  Serious: Yes (Life-Threatening, Hospitalization)
  Sender: FDA-Public Use
  Company Number: 200413363JP

PATIENT
  Age: 41 Year
  Sex: Female

DRUGS (2)
  1. LASIX [Suspect]
     Route: 048
  2. MEILAX [Concomitant]
     Indication: ANXIETY
     Dosage: DOSE: 1 TABLETS
     Route: 048

REACTIONS (5)
  - CONDITION AGGRAVATED [None]
  - ELECTROLYTE IMBALANCE [None]
  - METABOLIC ALKALOSIS [None]
  - RENAL IMPAIRMENT [None]
  - RESPIRATORY DEPRESSION [None]
